FAERS Safety Report 6183717-0 (Version None)
Quarter: 2009Q2

REPORT INFORMATION
  Report Type: 
  Country: None (occurrence: None)
  Receive Date: 20090508
  Receipt Date: 20090430
  Transmission Date: 20091009
  Serious: Yes (Hospitalization, Other)
  Sender: FDA-Public Use
  Company Number: US-ABBOTT-09P-163-0570748-00

PATIENT
  Sex: Male
  Weight: 74.002 kg

DRUGS (3)
  1. HUMIRA [Suspect]
     Indication: CROHN'S DISEASE
     Dosage: HUMIRA PRE-FILLED SYRINGE
     Route: 058
     Dates: start: 20080201, end: 20090401
  2. HUMIRA [Suspect]
     Route: 058
     Dates: start: 20080201, end: 20080401
  3. HUMIRA [Suspect]
     Indication: CROHN'S DISEASE
     Route: 058
     Dates: start: 20080401, end: 20080401

REACTIONS (4)
  - ABSCESS [None]
  - FATIGUE [None]
  - FISTULA [None]
  - NEOPLASM MALIGNANT [None]
